FAERS Safety Report 4767021-0 (Version None)
Quarter: 2005Q3

REPORT INFORMATION
  Report Type: 
  Country: None (occurrence: None)
  Receive Date: 20050908
  Receipt Date: 20050812
  Transmission Date: 20060218
  Serious: Yes (Death)
  Sender: FDA-Public Use
  Company Number: 6016638

PATIENT
  Age: 68 Year
  Sex: Male

DRUGS (3)
  1. INDAPAMIDE [Suspect]
     Indication: ESSENTIAL HYPERTENSION
     Dosage: 1 DOSAGE FORMS (1 DOSAGE FORMS, 1 D),ORAL
     Route: 048
     Dates: start: 20000719
  2. ZYBAN [Suspect]
     Dosage: 2 DOSAGE FORMS (2 DOSAGE FORMS,1 D), ORAL
     Route: 048
     Dates: start: 20010920
  3. ACCUPRIL [Concomitant]

REACTIONS (1)
  - MYOCARDIAL INFARCTION [None]
